FAERS Safety Report 7341949-X (Version None)
Quarter: 2011Q1

REPORT INFORMATION
  Report Type: 
  Country: None (occurrence: None)
  Receive Date: 20110309
  Receipt Date: 20110302
  Transmission Date: 20110831
  Serious: Yes (Other)
  Sender: FDA-Public Use
  Company Number: JP-PFIZER INC-2011028484

PATIENT
  Age: 56 Year
  Sex: Male

DRUGS (2)
  1. MYCOPHENOLATE MOFETIL [Concomitant]
  2. METHYLPREDNISOLONE SODIUM SUCCINATE [Suspect]

REACTIONS (1)
  - DIFFUSE LARGE B-CELL LYMPHOMA [None]
